FAERS Safety Report 16070857 (Version 7)
Quarter: 2022Q1

REPORT INFORMATION
  Report Type: Other
  Country: CA (occurrence: None)
  Receive Date: 20190314
  Receipt Date: 20220127
  Transmission Date: 20220423
  Serious: Yes (Other)
  Sender: FDA-Public Use
  Company Number: CA-ROCHE-2283369

PATIENT
  Age: 42 Year
  Sex: Female

DRUGS (13)
  1. OCREVUS [Suspect]
     Active Substance: OCRELIZUMAB
     Indication: Relapsing-remitting multiple sclerosis
     Dosage: 300 MG AT DAY 0 AND 14, THEN 600 MG EVERY 6 MONTH
     Route: 042
     Dates: start: 20180906
  2. MIRABEGRON [Concomitant]
     Active Substance: MIRABEGRON
  3. ZOPICLONE [Concomitant]
     Active Substance: ZOPICLONE
     Dosage: AT BEDTIME;
  4. BUPROPION [Concomitant]
     Active Substance: BUPROPION
     Indication: Depression
  5. DEXEDRINE [Concomitant]
     Active Substance: DEXTROAMPHETAMINE SULFATE
  6. DULOXETINE [Concomitant]
     Active Substance: DULOXETINE
     Indication: Depression
  7. DULOXETINE [Concomitant]
     Active Substance: DULOXETINE
     Indication: Neuralgia
  8. CANNABIS SATIVA SUBSP. INDICA TOP [Concomitant]
     Active Substance: CANNABIS SATIVA SUBSP. INDICA TOP
     Indication: Neuralgia
  9. NABILONE [Concomitant]
     Active Substance: NABILONE
  10. EPIPEN [Concomitant]
     Active Substance: EPINEPHRINE
  11. COVID-19 VACCINE [Concomitant]
     Dosage: FIRST DOSE
     Dates: start: 20210525
  12. COVID-19 VACCINE [Concomitant]
     Dosage: SECOND DOSE
     Dates: start: 20210624
  13. PREDNISONE [Concomitant]
     Active Substance: PREDNISONE

REACTIONS (7)
  - Systemic mycosis [Recovered/Resolved]
  - Kidney infection [Unknown]
  - Urinary retention [Not Recovered/Not Resolved]
  - Micturition urgency [Not Recovered/Not Resolved]
  - Nasopharyngitis [Not Recovered/Not Resolved]
  - Urinary tract infection [Recovered/Resolved]
  - Fatigue [Not Recovered/Not Resolved]

NARRATIVE: CASE EVENT DATE: 20190315
